FAERS Safety Report 20001018 (Version 3)
Quarter: 2021Q4

REPORT INFORMATION
  Report Type: Spontaneous
  Country: JP (occurrence: JP)
  Receive Date: 20211027
  Receipt Date: 20211227
  Transmission Date: 20220303
  Serious: Yes (Other)
  Sender: FDA-Public Use
  Company Number: JP-NOVARTISPH-NVSJ2021JP017359

PATIENT
  Age: 57 Year
  Sex: Female
  Weight: 46 kg

DRUGS (2)
  1. FINGOLIMOD HYDROCHLORIDE [Suspect]
     Active Substance: FINGOLIMOD HYDROCHLORIDE
     Indication: Multiple sclerosis
     Dosage: 0.5 MG
     Route: 048
  2. FINGOLIMOD HYDROCHLORIDE [Suspect]
     Active Substance: FINGOLIMOD HYDROCHLORIDE
     Dosage: UNK
     Route: 048

REACTIONS (3)
  - Diffuse large B-cell lymphoma [Unknown]
  - Decreased appetite [Unknown]
  - Macular oedema [Unknown]
